FAERS Safety Report 8480885-2 (Version None)
Quarter: 2012Q2

REPORT INFORMATION
  Report Type: 
  Country: None (occurrence: None)
  Receive Date: 20120625
  Receipt Date: 20120605
  Transmission Date: 20120825
  Serious: Yes (Other)
  Sender: FDA-Public Use
  Company Number: JP-2012-15445

PATIENT
  Age: 77 Year
  Sex: Male

DRUGS (10)
  1. DOXAZOSIN MESYLATE [Concomitant]
  2. ADALAT CR (NIFEDIPINE) TABLET [Concomitant]
  3. TANATRIL (IMIDAPRIL HYDROCHLORIDE) TABLET [Concomitant]
  4. CANDESARTAN CILEXETIL [Concomitant]
  5. FERROMIA (FERROUS SODIUM CITRATE) [Concomitant]
  6. LIPITOR (ATORVASTATATIN CALCIUM) [Concomitant]
  7. HERBESSER (DIALTAZEM  HYDROCHLORIDE) [Concomitant]
  8. KERLONG (BETAXOLOL HYDROCHLORIDE) TABLET [Concomitant]
  9. DIART (AZOSEMIDE) TABLET [Concomitant]
  10. SAMSCA [Suspect]
     Indication: CARDIAC FAILURE
     Dosage: 15 MG MILLIGRAM(S), QD, ORAL
     Route: 048
     Dates: start: 20120220, end: 20120606

REACTIONS (2)
  - DEHYDRATION [None]
  - BLOOD UREA INCREASED [None]
